FAERS Safety Report 11309268 (Version 2)
Quarter: 2015Q3

REPORT INFORMATION
  Report Type: Spontaneous
  Country: US (occurrence: US)
  Receive Date: 20150724
  Receipt Date: 20150810
  Transmission Date: 20151125
  Serious: Yes (Death)
  Sender: FDA-Public Use
  Company Number: US-009507513-1507USA007716

PATIENT
  Age: 30 Year
  Sex: Female

DRUGS (13)
  1. CEFEPIME [Concomitant]
     Active Substance: CEFEPIME HYDROCHLORIDE
     Indication: ANTIBIOTIC THERAPY
  2. ACETAMINOPHEN. [Concomitant]
     Active Substance: ACETAMINOPHEN
  3. CELESTONE [Suspect]
     Active Substance: BETAMETHASONE
     Dosage: 12 MG, TWO DOSES 24 HOURS APART
  4. VANCOMYCIN [Concomitant]
     Active Substance: VANCOMYCIN
     Indication: ANTIBIOTIC THERAPY
  5. CEFAZOLIN [Concomitant]
     Active Substance: CEFAZOLIN
     Indication: ESCHERICHIA URINARY TRACT INFECTION
  6. MAGNESIUM SULFATE. [Concomitant]
     Active Substance: MAGNESIUM SULFATE
  7. CEFTRIAXONE. [Concomitant]
     Active Substance: CEFTRIAXONE
  8. OSELTAMIVIR [Concomitant]
     Active Substance: OSELTAMIVIR
  9. METRONIDAZOLE. [Concomitant]
     Active Substance: METRONIDAZOLE
     Indication: ANTIBIOTIC THERAPY
  10. ALBENDAZOLE [Concomitant]
     Active Substance: ALBENDAZOLE
  11. STROMECTOL [Concomitant]
     Active Substance: IVERMECTIN
     Indication: STRONGYLOIDIASIS
     Dosage: UNK
  12. MORPHINE [Concomitant]
     Active Substance: MORPHINE
  13. AZITHROMYCIN [Concomitant]
     Active Substance: AZITHROMYCIN ANHYDROUS

REACTIONS (2)
  - Maternal exposure during pregnancy [Recovered/Resolved]
  - Superinfection [Fatal]
